FAERS Safety Report 4731151-X (Version None)
Quarter: 2005Q3

REPORT INFORMATION
  Report Type: 
  Country: None (occurrence: None)
  Receive Date: 20050802
  Receipt Date: 20050719
  Transmission Date: 20060218
  Serious: Yes (Other)
  Sender: FDA-Public Use
  Company Number: BE-SOLVAY-00205002432

PATIENT
  Age: 78 Year
  Sex: Female

DRUGS (6)
  1. MEDROL [Concomitant]
     Indication: ILL-DEFINED DISORDER
     Dosage: DAILY DOSE:  UNKNOWN
     Route: 065
  2. COVERSYL [Suspect]
     Indication: HYPERTENSION
     Dosage: DAILY DOSE: 8 MILLIGRAM(S)
     Route: 048
     Dates: start: 20020101
  3. BUDESONIDE [Concomitant]
     Indication: ILL-DEFINED DISORDER
     Dosage: DAILY DOSE:  UNKNOWN
     Route: 065
  4. MESULID [Suspect]
     Indication: MYALGIA
     Dosage: DAILY DOSE:  UNKNOWN
     Route: 048
     Dates: start: 20040701, end: 20040901
  5. FORMOTEROL [Concomitant]
     Indication: ILL-DEFINED DISORDER
     Dosage: DAILY DOSE:  UNKNOWN
     Route: 065
  6. BENZODIAZEPINE [Concomitant]
     Indication: ILL-DEFINED DISORDER
     Dosage: DAILY DOSE:  UNKNOWN
     Route: 065

REACTIONS (5)
  - DRUG INTERACTION [None]
  - HYPERTENSION [None]
  - MYALGIA [None]
  - RENAL ATROPHY [None]
  - RENAL FAILURE [None]
